FAERS Safety Report 8347153-0 (Version None)
Quarter: 2012Q2

REPORT INFORMATION
  Report Type: 
  Country: None (occurrence: None)
  Receive Date: 20120509
  Receipt Date: 20120507
  Transmission Date: 20120825
  Serious: Yes (Hospitalization)
  Sender: FDA-Public Use
  Company Number: JP-ABBOTT-12P-087-0929350-00

PATIENT

DRUGS (9)
  1. VALGANCICLOVIR [Concomitant]
     Indication: CYTOMEGALOVIRUS TEST POSITIVE
  2. FOSCARNET [Concomitant]
     Indication: CYTOMEGALOVIRUS TEST POSITIVE
  3. CAM [Concomitant]
     Indication: MYCOBACTERIUM AVIUM COMPLEX INFECTION
  4. RIFAMPICIN [Concomitant]
     Indication: MYCOBACTERIUM AVIUM COMPLEX INFECTION
  5. CIPROFLOXACIN [Concomitant]
     Indication: MYCOBACTERIUM AVIUM COMPLEX INFECTION
  6. ETHAMBUTOL HYDROCHLORIDE [Concomitant]
     Indication: MYCOBACTERIUM AVIUM COMPLEX INFECTION
  7. RITONAVIR [Suspect]
     Indication: HIV INFECTION
  8. TRUVADA [Suspect]
     Indication: HIV INFECTION
  9. DARUNAVIR HYDRATE [Suspect]
     Indication: HIV INFECTION

REACTIONS (2)
  - PAROTID LIPOMATOSIS [None]
  - IMMUNE RECONSTITUTION SYNDROME [None]
